FAERS Safety Report 4638165-9 (Version None)
Quarter: 2005Q2

REPORT INFORMATION
  Report Type: 
  Country: None (occurrence: None)
  Receive Date: 20050415
  Receipt Date: 20050407
  Transmission Date: 20051028
  Serious: Yes (Death)
  Sender: FDA-Public Use
  Company Number: 05H-163-0297165-00

PATIENT
  Age: 50 Year
  Sex: Female
  Weight: 120.4 kg

DRUGS (2)
  1. MORPHINE SULFATE [Suspect]
     Indication: ANALGESIC EFFECT
     Dosage: 1 MG/ML CONCENTRATION, PCA + CONTINUOUS, INTRAVENOUS VIA PCA
     Route: 042
     Dates: start: 20050101
  2. RINGER-LACTATE SOLUTION ^FRESENIUS^ [Concomitant]

REACTIONS (3)
  - CARDIO-RESPIRATORY ARREST [None]
  - SNORING [None]
  - VENTRICULAR FIBRILLATION [None]
